FAERS Safety Report 6240642-4 (Version None)
Quarter: 2009Q2

REPORT INFORMATION
  Report Type: 
  Country: None (occurrence: None)
  Receive Date: 20090623
  Receipt Date: 20081121
  Transmission Date: 20091009
  Serious: No
  Sender: FDA-Public Use
  Company Number: US-ASTRAZENECA-2008UW26152

PATIENT
  Age: 77 Year
  Sex: Female
  Weight: 54.4 kg

DRUGS (9)
  1. PULMICORT RESPULES [Suspect]
     Indication: DYSPNOEA
     Dosage: 0.5 MG
     Route: 055
  2. LUNESTA [Concomitant]
  3. LISINOPRIL [Concomitant]
  4. OMEPRAZOLE [Concomitant]
  5. SPIRONOLACTONE [Concomitant]
  6. LEVOTHYROXINE SODIUM [Concomitant]
  7. SOME KIND OF STATIN [Concomitant]
  8. O2 [Concomitant]
  9. ADDITIONAL MEDICATIONS [Concomitant]

REACTIONS (1)
  - EYE PAIN [None]
